FAERS Safety Report 7782195-5 (Version None)
Quarter: 2011Q3

REPORT INFORMATION
  Report Type: 
  Country: None (occurrence: None)
  Receive Date: 20110927
  Receipt Date: 20110919
  Transmission Date: 20111222
  Serious: Yes (Hospitalization, Other)
  Sender: FDA-Public Use
  Company Number: US-SANOFI-AVENTIS-2011SA061653

PATIENT
  Sex: Male

DRUGS (4)
  1. NOVOLOG [Concomitant]
  2. LANTUS [Suspect]
     Dosage: DOSE:34 UNIT(S)
     Route: 058
  3. LANTUS [Suspect]
     Dosage: DOSE:26 UNIT(S)
     Route: 058
  4. LANTUS [Suspect]
     Dosage: DOSE:38 UNIT(S)
     Route: 058

REACTIONS (6)
  - PLEURAL EFFUSION [None]
  - RESPIRATORY ARREST [None]
  - GASTRIC ULCER [None]
  - EYE HAEMORRHAGE [None]
  - CORONARY ARTERY BYPASS [None]
  - BLOOD GLUCOSE INCREASED [None]
